FAERS Safety Report 22154002 (Version 1)
Quarter: 2023Q1

REPORT INFORMATION
  Report Type: Spontaneous
  Country: SE (occurrence: SE)
  Receive Date: 20230330
  Receipt Date: 20230330
  Transmission Date: 20230418
  Serious: Yes (Other)
  Sender: FDA-Public Use
  Company Number: None

PATIENT
  Age: 34 Year
  Sex: Female

DRUGS (4)
  1. GONAL-F [Suspect]
     Active Substance: FOLLITROPIN
     Indication: Blood follicle stimulating hormone
     Dosage: 900 IU/1.5 ML ONCE DAILY
     Route: 058
     Dates: start: 20210812, end: 20210819
  2. COMIRNATY [Suspect]
     Active Substance: TOZINAMERAN
     Indication: Product used for unknown indication
     Dosage: FIRST DOSE
     Dates: start: 20210701, end: 20210701
  3. COMIRNATY [Suspect]
     Active Substance: TOZINAMERAN
     Dosage: SECOND DOSE
     Dates: start: 20210810, end: 20210810
  4. NAFARELIN ACETATE [Concomitant]
     Active Substance: NAFARELIN ACETATE
     Indication: Product used for unknown indication
     Dosage: 200 MICROGRAM TWICE PER DAY
     Route: 045
     Dates: start: 20201215

REACTIONS (1)
  - Facial paresis [Not Recovered/Not Resolved]

NARRATIVE: CASE EVENT DATE: 20210818
